FAERS Safety Report 10599024 (Version 1)
Quarter: 2014Q4

REPORT INFORMATION
  Report Type: Spontaneous
  Country: GB (occurrence: GB)
  Receive Date: 20141121
  Receipt Date: 20141121
  Transmission Date: 20150529
  Serious: Yes (Hospitalization, Disabling)
  Sender: FDA-Public Use
  Company Number: PHHY2014GB149551

PATIENT
  Age: 17 Year
  Sex: Female
  Weight: 55.6 kg

DRUGS (1)
  1. GABAPENTIN. [Suspect]
     Active Substance: GABAPENTIN
     Indication: COMPLEX REGIONAL PAIN SYNDROME
     Dosage: 300 MG TO 600 MG
     Route: 048
     Dates: start: 20140201, end: 20140304

REACTIONS (7)
  - Anxiety [Recovered/Resolved]
  - Loss of consciousness [Recovered/Resolved]
  - Urinary tract infection [Recovered/Resolved]
  - Amnesia [Recovered/Resolved]
  - Vision blurred [Recovered/Resolved]
  - Crying [Recovered/Resolved]
  - Hallucination [Recovered/Resolved]

NARRATIVE: CASE EVENT DATE: 20140202
